FAERS Safety Report 5120019-5 (Version None)
Quarter: 2006Q3

REPORT INFORMATION
  Report Type: 
  Country: None (occurrence: None)
  Receive Date: 20060929
  Receipt Date: 20060914
  Transmission Date: 20061208
  Serious: Yes (Hospitalization)
  Sender: FDA-Public Use
  Company Number: 8018995

PATIENT
  Age: 3 Year
  Sex: Female

DRUGS (2)
  1. KEPPRA [Suspect]
     Indication: EPILEPSY
     Dosage: PO
     Route: 048
  2. VALPROATE SODIUM [Concomitant]

REACTIONS (1)
  - UNEVALUABLE EVENT [None]
